FAERS Safety Report 8244888-5 (Version None)
Quarter: 2012Q1

REPORT INFORMATION
  Report Type: 
  Country: None (occurrence: None)
  Receive Date: 20120329
  Receipt Date: 20110805
  Transmission Date: 20120608
  Serious: No
  Sender: FDA-Public Use
  Company Number: US-MYLANLABS-2011S1016576

PATIENT
  Sex: Male

DRUGS (6)
  1. VALIUM [Concomitant]
     Route: 048
  2. CELEXA [Concomitant]
     Route: 048
  3. FENTANYL-100 [Suspect]
     Indication: PAIN
     Dosage: Q3D
     Route: 062
     Dates: start: 20110601
  4. INDERAL [Concomitant]
     Route: 048
  5. FUROSEMIDE [Concomitant]
     Route: 048
  6. SPIRONOLACTONE [Concomitant]
     Route: 048

REACTIONS (1)
  - WITHDRAWAL SYNDROME [None]
